FAERS Safety Report 19614074 (Version 1)
Quarter: 2021Q3

REPORT INFORMATION
  Report Type: Spontaneous
  Country: GB (occurrence: GB)
  Receive Date: 20210727
  Receipt Date: 20210727
  Transmission Date: 20211014
  Serious: Yes (Other)
  Sender: FDA-Public Use
  Company Number: GB-ACCORD-233148

PATIENT
  Age: 21 Year
  Sex: Male

DRUGS (6)
  1. MIRTAZAPINE. [Concomitant]
     Active Substance: MIRTAZAPINE
     Indication: ILL-DEFINED DISORDER
  2. PREGABALIN. [Concomitant]
     Active Substance: PREGABALIN
     Indication: ILL-DEFINED DISORDER
  3. COLECALCIFEROL [Concomitant]
     Active Substance: CHOLECALCIFEROL
     Indication: ILL-DEFINED DISORDER
  4. QUETIAPINE/QUETIAPINE FUMARATE [Suspect]
     Active Substance: QUETIAPINE FUMARATE
     Indication: PSYCHOTIC DISORDER
     Route: 048
  5. AZATHIOPRINE. [Concomitant]
     Active Substance: AZATHIOPRINE
     Indication: ILL-DEFINED DISORDER
  6. ADALIMUMAB [Concomitant]
     Active Substance: ADALIMUMAB
     Indication: ILL-DEFINED DISORDER

REACTIONS (5)
  - Dysphagia [Recovered/Resolved]
  - Visual impairment [Recovered/Resolved]
  - Obsessive thoughts [Recovered/Resolved with Sequelae]
  - Dyskinesia [Recovered/Resolved]
  - Mental impairment [Recovered/Resolved]
